FAERS Safety Report 16839120 (Version 1)
Quarter: 2019Q3

REPORT INFORMATION
  Report Type: Report from Study
  Country: US (occurrence: US)
  Receive Date: 20190923
  Receipt Date: 20190923
  Transmission Date: 20191005
  Serious: Yes (Hospitalization)
  Sender: FDA-Public Use
  Company Number: US-MYLANLABS-2019M1087136

PATIENT
  Age: 52 Year
  Sex: Female

DRUGS (1)
  1. RILUZOLE. [Suspect]
     Active Substance: RILUZOLE
     Indication: MAJOR DEPRESSION
     Dosage: 50 MILLIGRAM
     Route: 065

REACTIONS (2)
  - Vomiting [Recovered/Resolved]
  - Amnesia [Recovered/Resolved]
